FAERS Safety Report 4966736-9 (Version None)
Quarter: 2006Q2

REPORT INFORMATION
  Report Type: 
  Country: None (occurrence: None)
  Receive Date: 20060407
  Receipt Date: 20060403
  Transmission Date: 20061013
  Serious: Yes (Hospitalization)
  Sender: FDA-Public Use
  Company Number: DE-MERCK-0604DEU00026

PATIENT
  Sex: Female

DRUGS (4)
  1. COZAAR [Suspect]
     Indication: HYPERTENSION
     Route: 048
     Dates: start: 20050101, end: 20060126
  2. COZAAR [Suspect]
     Route: 048
     Dates: start: 20060127, end: 20060301
  3. METOPROLOL [Suspect]
     Route: 048
     Dates: start: 20060301, end: 20060327
  4. SPIRONOLACTONE [Concomitant]
     Route: 048
     Dates: end: 20060331

REACTIONS (1)
  - CEREBELLAR INFARCTION [None]
